FAERS Safety Report 17549034 (Version 1)
Quarter: 2020Q1

REPORT INFORMATION
  Report Type: Report from Study
  Country: ES (occurrence: ES)
  Receive Date: 20200317
  Receipt Date: 20200317
  Transmission Date: 20200409
  Serious: Yes (Other)
  Sender: FDA-Public Use
  Company Number: ES-AUROBINDO-AUR-APL-2019-109127

PATIENT
  Age: 53 Year
  Sex: Male

DRUGS (1)
  1. DUTASTERIDE SOFT CAPSULES [Suspect]
     Active Substance: DUTASTERIDE
     Indication: ANDROGENETIC ALOPECIA
     Dosage: 0.5 MILLIGRAM, EVERY WEEK (5 CAPSULE OF 0.5 MG PER WEEK)
     Route: 048

REACTIONS (2)
  - Off label use [Unknown]
  - Libido decreased [Unknown]
